FAERS Safety Report 8889228 (Version 2)
Quarter: 2012Q4

REPORT INFORMATION
  Report Type: Report from Study
  Country: IT (occurrence: IT)
  Receive Date: 20121106
  Receipt Date: 20121211
  Transmission Date: 20130627
  Serious: Yes (Death, Hospitalization)
  Sender: FDA-Public Use
  Company Number: IT-CELGENEUS-083-21880-12050603

PATIENT
  Age: 78 Year
  Sex: Male

DRUGS (7)
  1. REVLIMID [Suspect]
     Indication: LYMPHOMA
     Dosage: 10 Milligram
     Route: 048
     Dates: start: 20090909, end: 20090929
  2. REVLIMID [Suspect]
     Dosage: 10 Milligram
     Route: 048
     Dates: start: 20091014, end: 20091029
  3. DIURETIC [Concomitant]
     Indication: COPD
     Route: 065
  4. DIGITALIC [Concomitant]
     Indication: COPD
     Route: 065
  5. BETA BLOCKER [Concomitant]
     Indication: COPD
     Route: 065
  6. BLOOD TRANSFUSION [Concomitant]
     Indication: DRUG USE FOR UNKNOWN INDICATION
     Route: 041
     Dates: start: 20091023, end: 20091102
  7. EPOETIN ALFA [Concomitant]
     Indication: ANEMIA
     Route: 065
     Dates: start: 20090928, end: 20091118

REACTIONS (3)
  - Lymphoma [Fatal]
  - Cardiac failure congestive [Fatal]
  - Chronic obstructive pulmonary disease [Recovered/Resolved]
